FAERS Safety Report 20640451 (Version 3)
Quarter: 2022Q3

REPORT INFORMATION
  Report Type: Spontaneous
  Country: US (occurrence: US)
  Receive Date: 20220327
  Receipt Date: 20220911
  Transmission Date: 20221026
  Serious: No
  Sender: FDA-Public Use
  Company Number: US-SA-SAC20220321001068

PATIENT
  Age: 51 Year
  Sex: Female

DRUGS (31)
  1. DUPIXENT [Suspect]
     Active Substance: DUPILUMAB
     Indication: Dermatitis allergic
     Dosage: 300 MG, QOW
     Route: 058
     Dates: start: 20210625
  2. BENAZEPRIL [Concomitant]
     Active Substance: BENAZEPRIL HYDROCHLORIDE
  3. BENAZEPRIL [Concomitant]
     Active Substance: BENAZEPRIL HYDROCHLORIDE
  4. CALCIUM [Concomitant]
     Active Substance: CALCIUM
  5. CALCIUM [Concomitant]
     Active Substance: CALCIUM
  6. CITALOPRAM [Concomitant]
     Active Substance: CITALOPRAM HYDROBROMIDE
  7. CITALOPRAM [Concomitant]
     Active Substance: CITALOPRAM HYDROBROMIDE
  8. ESCITALOPRAM [Concomitant]
     Active Substance: ESCITALOPRAM OXALATE
  9. ESCITALOPRAM [Concomitant]
     Active Substance: ESCITALOPRAM OXALATE
  10. ESTRADIOL [Concomitant]
     Active Substance: ESTRADIOL
  11. ESTRADIOL [Concomitant]
     Active Substance: ESTRADIOL
  12. GABAPENTIN [Concomitant]
     Active Substance: GABAPENTIN
  13. GABAPENTIN [Concomitant]
     Active Substance: GABAPENTIN
  14. LISINOPRIL [Concomitant]
     Active Substance: LISINOPRIL
  15. LISINOPRIL [Concomitant]
     Active Substance: LISINOPRIL
  16. METFORMIN [Concomitant]
     Active Substance: METFORMIN HYDROCHLORIDE
  17. METFORMIN [Concomitant]
     Active Substance: METFORMIN HYDROCHLORIDE
  18. TRIAMCINOLONE ACETONIDE [Concomitant]
     Active Substance: TRIAMCINOLONE ACETONIDE
  19. VITAMIN D NOS [Concomitant]
     Active Substance: VITAMIN D NOS
  20. METHYPRED [METHYLPREDNISOLONE ACETATE] [Concomitant]
  21. CYCLOBENZAPRINE [Concomitant]
     Active Substance: CYCLOBENZAPRINE
  22. CYCLOBENZAPRINE [Concomitant]
     Active Substance: CYCLOBENZAPRINE
  23. LEVOTHYROXINE [Concomitant]
     Active Substance: LEVOTHYROXINE
  24. LEVOTHYROXINE [Concomitant]
     Active Substance: LEVOTHYROXINE
  25. DOXEPIN HCL [Concomitant]
     Active Substance: DOXEPIN HYDROCHLORIDE
  26. FLUCONAZOLE [Concomitant]
     Active Substance: FLUCONAZOLE
  27. FLUTICASONE [Concomitant]
     Active Substance: FLUTICASONE
  28. ONDANSETRON [Concomitant]
     Active Substance: ONDANSETRON
  29. VITAMIN D NOS [Concomitant]
     Active Substance: VITAMIN D NOS
  30. BETAMETH DIPROPIONATE [Concomitant]
  31. METFORMIN [Concomitant]
     Active Substance: METFORMIN HYDROCHLORIDE

REACTIONS (5)
  - Pain of skin [Unknown]
  - Rash [Unknown]
  - Oral herpes [Not Recovered/Not Resolved]
  - Eczema [Unknown]
  - Product use in unapproved indication [Unknown]

NARRATIVE: CASE EVENT DATE: 20210625
